FAERS Safety Report 21161786 (Version 1)
Quarter: 2022Q3

REPORT INFORMATION
  Report Type: Spontaneous
  Country: JP (occurrence: JP)
  Receive Date: 20220802
  Receipt Date: 20220802
  Transmission Date: 20221026
  Serious: Yes (Other)
  Sender: FDA-Public Use
  Company Number: JP-BAXTER-2022BAX016325

PATIENT
  Age: 68 Year
  Sex: Female

DRUGS (6)
  1. DOXORUBICIN [Suspect]
     Active Substance: DOXORUBICIN
     Indication: Malignant peritoneal neoplasm
     Dosage: UNK
     Route: 042
  2. DOXORUBICIN [Suspect]
     Active Substance: DOXORUBICIN
     Indication: Malignant peritoneal neoplasm
     Dosage: 6 CYCLE
     Route: 042
  3. CARBOPLATIN [Concomitant]
     Active Substance: CARBOPLATIN
     Indication: Malignant peritoneal neoplasm
     Route: 065
  4. NIRAPARIB TOSYLATE MONOHYDRATE [Concomitant]
     Active Substance: NIRAPARIB TOSYLATE MONOHYDRATE
     Indication: Malignant peritoneal neoplasm
     Route: 065
  5. BEVACIZUMAB [Concomitant]
     Active Substance: BEVACIZUMAB
     Indication: Malignant peritoneal neoplasm
     Route: 065
  6. OLAPARIB [Concomitant]
     Active Substance: OLAPARIB
     Indication: Malignant peritoneal neoplasm
     Route: 065

REACTIONS (1)
  - Gastrointestinal perforation [Unknown]
